FAERS Safety Report 24163606 (Version 2)
Quarter: 2024Q3

REPORT INFORMATION
  Report Type: Spontaneous
  Country: US (occurrence: US)
  Receive Date: 20240801
  Receipt Date: 20240923
  Transmission Date: 20241016
  Serious: No
  Sender: CYCLE PHARMACEUTICALS
  Company Number: US-CYCLE PHARMACEUTICALS LTD-2024-CYC-000081

PATIENT

DRUGS (4)
  1. NITYR [Suspect]
     Active Substance: NITISINONE
     Indication: Tyrosinaemia
     Dosage: 3 TABLETS, QD
     Route: 048
     Dates: start: 20201123
  2. NITYR [Suspect]
     Active Substance: NITISINONE
     Indication: Amino acid metabolism disorder
  3. RISPERIDONE [Concomitant]
     Active Substance: RISPERIDONE
     Indication: Product used for unknown indication
     Route: 065
  4. VITAMIN D2 [Concomitant]
     Active Substance: ERGOCALCIFEROL
     Indication: Product used for unknown indication
     Route: 065

REACTIONS (1)
  - Attention deficit hyperactivity disorder [Unknown]
